FAERS Safety Report 4936089-0 (Version None)
Quarter: 2006Q1

REPORT INFORMATION
  Report Type: 
  Country: None (occurrence: None)
  Receive Date: 20060307
  Receipt Date: 20051010
  Transmission Date: 20060701
  Serious: No
  Sender: FDA-Public Use
  Company Number: US-GLAXOSMITHKLINE-A0577705A

PATIENT
  Age: 75 Year
  Sex: Female

DRUGS (1)
  1. REQUIP [Suspect]
     Indication: RESTLESS LEGS SYNDROME
     Dosage: .25MG THREE TIMES PER DAY
     Route: 048
     Dates: start: 20050812

REACTIONS (2)
  - MUSCULAR WEAKNESS [None]
  - TREMOR [None]
